FAERS Safety Report 4924863-6 (Version None)
Quarter: 2006Q1

REPORT INFORMATION
  Report Type: 
  Country: None (occurrence: None)
  Receive Date: 20060227
  Receipt Date: 20050107
  Transmission Date: 20060701
  Serious: Yes (Hospitalization)
  Sender: FDA-Public Use
  Company Number: US-MERCK-0501USA01863

PATIENT
  Age: 55 Year
  Sex: Male
  Weight: 84 kg

DRUGS (1)
  1. VIOXX [Suspect]
     Indication: ARTHRALGIA
     Route: 048
     Dates: start: 20030107, end: 20040101

REACTIONS (8)
  - BLOOD PRESSURE FLUCTUATION [None]
  - CHEST PAIN [None]
  - HIP ARTHROPLASTY [None]
  - HYPERKALAEMIA [None]
  - MELAENA [None]
  - PITTING OEDEMA [None]
  - ULCER [None]
  - VENTRICULAR HYPERTROPHY [None]
